FAERS Safety Report 11395415 (Version 1)
Quarter: 2015Q3

REPORT INFORMATION
  Report Type: Spontaneous
  Country: US (occurrence: None)
  Receive Date: 20150817
  Receipt Date: 20150817
  Transmission Date: 20151125
  Serious: Yes (Other)
  Sender: FDA-Public Use
  Company Number: None

PATIENT
  Age: 24 Year
  Sex: Male
  Weight: 97.52 kg

DRUGS (5)
  1. BIOTIN [Concomitant]
     Active Substance: BIOTIN
  2. FINASTERIDE. [Suspect]
     Active Substance: FINASTERIDE
     Indication: ANDROGENETIC ALOPECIA
     Dosage: 1 PILL ONCE DAILY TAKEN BY MOUTH
     Route: 048
     Dates: start: 20141112, end: 20150722
  3. ROGAINE [Concomitant]
     Active Substance: MINOXIDIL
  4. LUVOX [Concomitant]
     Active Substance: FLUVOXAMINE MALEATE
  5. FISH OIL [Concomitant]
     Active Substance: FISH OIL

REACTIONS (7)
  - Stress [None]
  - Increased appetite [None]
  - Erectile dysfunction [None]
  - Depression [None]
  - Weight increased [None]
  - Libido decreased [None]
  - Ejaculation failure [None]

NARRATIVE: CASE EVENT DATE: 20150301
